FAERS Safety Report 4430068-8 (Version None)
Quarter: 2004Q3

REPORT INFORMATION
  Report Type: 
  Country: None (occurrence: None)
  Receive Date: 20040816
  Receipt Date: 20040730
  Transmission Date: 20050211
  Serious: Yes (Death, Hospitalization)
  Sender: FDA-Public Use
  Company Number: 2004-BP-06307NB

PATIENT
  Age: 82 Year
  Sex: Female

DRUGS (4)
  1. BI-SIFROL TABLETS (PRAMIPEXOLE DIHYDROCHLORIDE) (TA) [Suspect]
     Indication: PARKINSON'S DISEASE
     Dosage: 0.75 MG (0.5 MG) PO
     Route: 048
     Dates: start: 20040630, end: 20040710
  2. AMLODIPINE BESYLATE [Suspect]
     Indication: HYPERTENSION
     Dosage: 5 MG  PO
     Route: 048
     Dates: start: 20040626, end: 20040717
  3. SYMMETREL [Concomitant]
  4. NEODOPASOL(MADOPAR) [Concomitant]

REACTIONS (1)
  - HEPATIC FUNCTION ABNORMAL [None]
